FAERS Safety Report 4780979-9 (Version None)
Quarter: 2005Q3

REPORT INFORMATION
  Report Type: 
  Country: None (occurrence: None)
  Receive Date: 20050928
  Receipt Date: 20050906
  Transmission Date: 20060218
  Serious: Yes (Hospitalization)
  Sender: FDA-Public Use
  Company Number: JP-BOEHRINGER INGELHEIM PHARMACEUTICALS, INC.-2005-BP-15950YA

PATIENT
  Sex: Male

DRUGS (7)
  1. HARNAL [Suspect]
     Indication: BENIGN PROSTATIC HYPERPLASIA
     Route: 048
     Dates: start: 20050223, end: 20050414
  2. HARNAL [Suspect]
     Indication: DYSURIA
  3. BUP-4 [Suspect]
     Indication: POLLAKIURIA
     Route: 048
     Dates: start: 20050306, end: 20050407
  4. LOSARTAN POTASSIUM [Concomitant]
     Indication: HYPERTENSION
     Route: 048
     Dates: start: 20050223, end: 20050407
  5. MARZULEN [Concomitant]
     Indication: ABDOMINAL SYMPTOM
     Route: 048
     Dates: start: 20050223, end: 20050407
  6. LACTOBACILLUS BIFIDUS, LYOPHILIZED [Concomitant]
     Indication: ABDOMINAL SYMPTOM
     Route: 048
     Dates: start: 20050223, end: 20050407
  7. MAGNESIUM OXIDE [Concomitant]
     Indication: CONSTIPATION
     Route: 048
     Dates: start: 20050223, end: 20050407

REACTIONS (3)
  - BRADYKINESIA [None]
  - ILEUS [None]
  - PARKINSONISM [None]
